FAERS Safety Report 5599319-0 (Version None)
Quarter: 2008Q1

REPORT INFORMATION
  Report Type: 
  Country: None (occurrence: None)
  Receive Date: 20080117
  Receipt Date: 20080107
  Transmission Date: 20080703
  Serious: Yes (Other)
  Sender: FDA-Public Use
  Company Number: 2008AL000156

PATIENT
  Sex: Female

DRUGS (2)
  1. VERAPAMIL HYDROCHLORIDE [Suspect]
     Indication: CLUSTER HEADACHE
     Dosage: 80 MG; TID; PO
     Route: 048
     Dates: start: 20070428, end: 20070806
  2. ZOLMITRIPTAN [Concomitant]

REACTIONS (1)
  - HALLUCINATION [None]
